FAERS Safety Report 4932461-3 (Version None)
Quarter: 2006Q1

REPORT INFORMATION
  Report Type: 
  Country: None (occurrence: None)
  Receive Date: 20060303
  Receipt Date: 20030605
  Transmission Date: 20060701
  Serious: Yes (Hospitalization, Disabling)
  Sender: FDA-Public Use
  Company Number: US-MERCK-0306USA00894

PATIENT
  Age: 67 Year
  Sex: Female
  Weight: 64 kg

DRUGS (5)
  1. VIOXX [Suspect]
     Indication: ARTHRALGIA
     Route: 048
     Dates: start: 20000104, end: 20011203
  2. HUMIBID L.A. [Concomitant]
     Route: 048
  3. DETROL [Concomitant]
     Route: 048
  4. EVISTA [Concomitant]
     Route: 048
  5. FOSAMAX [Concomitant]
     Route: 048

REACTIONS (18)
  - ABDOMINAL MASS [None]
  - ADVERSE EVENT [None]
  - ARRHYTHMIA [None]
  - ARTHRALGIA [None]
  - CHEST PAIN [None]
  - CORONARY ARTERY DISEASE [None]
  - CYSTITIS GLANDULARIS [None]
  - FALL [None]
  - HYPERTENSION [None]
  - HYPOTHYROIDISM [None]
  - LIMB INJURY [None]
  - OSTEOARTHRITIS [None]
  - RADIUS FRACTURE [None]
  - RHINITIS [None]
  - SPINAL OSTEOARTHRITIS [None]
  - UPPER LIMB FRACTURE [None]
  - URETHRAL HAEMORRHAGE [None]
  - URINARY TRACT INFECTION [None]
